FAERS Safety Report 10588933 (Version 1)
Quarter: 2014Q4

REPORT INFORMATION
  Report Type: Spontaneous
  Country: US (occurrence: US)
  Receive Date: 20141117
  Receipt Date: 20141117
  Transmission Date: 20150529
  Serious: No
  Sender: FDA-Public Use
  Company Number: US-DRREDDYS-USA/USA/14/0043092

PATIENT
  Age: 65 Year
  Sex: Male
  Weight: 68.03 kg

DRUGS (2)
  1. MAXALT [Concomitant]
     Active Substance: RIZATRIPTAN BENZOATE
     Indication: MIGRAINE
     Route: 065
  2. SUMATRIPTAN INJECTION USP, 6 MG/0.5 ML [Suspect]
     Active Substance: SUMATRIPTAN
     Indication: MIGRAINE
     Dosage: 6 MG AT ONSET.  MAY REPEAT IN 2 HOURS. MAXIMUM OF 2 DOSES PER 24 HOURS
     Route: 065

REACTIONS (2)
  - Drug dose omission [Unknown]
  - Product quality issue [Unknown]

NARRATIVE: CASE EVENT DATE: 20140912
